FAERS Safety Report 21788744 (Version 8)
Quarter: 2023Q4

REPORT INFORMATION
  Report Type: Spontaneous
  Country: US (occurrence: US)
  Receive Date: 20221228
  Receipt Date: 20231221
  Transmission Date: 20240110
  Serious: No
  Sender: FDA-Public Use
  Company Number: US-PFIZER INC-PV202200130147

PATIENT
  Age: 66 Year
  Sex: Female
  Weight: 68.934 kg

DRUGS (1)
  1. IBRANCE [Suspect]
     Active Substance: PALBOCICLIB
     Dosage: 100 MG, DAILY (TAKE 1 TABLET (100 MG TOTAL) BY MOUTH DAILY)
     Route: 048

REACTIONS (1)
  - Neoplasm progression [Unknown]
